FAERS Safety Report 21435551 (Version 1)
Quarter: 2022Q4

REPORT INFORMATION
  Report Type: Spontaneous
  Country: US (occurrence: US)
  Receive Date: 20221010
  Receipt Date: 20221010
  Transmission Date: 20230113
  Serious: No
  Sender: FDA-Public Use
  Company Number: US-SANOFI-01308125

PATIENT
  Sex: Female

DRUGS (1)
  1. XYZAL ALLERGY 24HR [Suspect]
     Active Substance: LEVOCETIRIZINE DIHYDROCHLORIDE
     Indication: Adverse drug reaction
     Dosage: UNK, 1/2 TABLET IN THE MORNING AND ANOTHER HALF BEFORE BEDTIME

REACTIONS (3)
  - Somnolence [Unknown]
  - Nasal inflammation [Unknown]
  - Oropharyngeal pain [Unknown]
